FAERS Safety Report 25034988 (Version 1)
Quarter: 2025Q1

REPORT INFORMATION
  Report Type: Spontaneous
  Country: JP (occurrence: JP)
  Receive Date: 20250304
  Receipt Date: 20250304
  Transmission Date: 20250408
  Serious: Yes (Other)
  Sender: Haleon PLC
  Company Number: JP-002147023-NVSJ2025JP001351

PATIENT
  Age: 36 Year
  Sex: Male

DRUGS (1)
  1. VOLTAREN [Suspect]
     Active Substance: DICLOFENAC SODIUM
     Indication: Product used for unknown indication
     Dosage: DAILY DOSE(S): 25MG, THERAPY DATES (FROM/TO):2021-OCT/2022-JAN, THERAPY DURATION: UNKNOWN
     Route: 048
     Dates: start: 202110, end: 202201

REACTIONS (2)
  - Peritonitis [Unknown]
  - Gastric ulcer perforation [Unknown]
